FAERS Safety Report 14270556 (Version 2)
Quarter: 2018Q4

REPORT INFORMATION
  Report Type: Report from Study
  Country: JP (occurrence: JP)
  Receive Date: 20171211
  Receipt Date: 20181012
  Transmission Date: 20190204
  Serious: Yes (Other)
  Sender: FDA-Public Use
  Company Number: JP-OTSUKA-2015_008109

PATIENT
  Age: 54 Year
  Sex: Female

DRUGS (3)
  1. CLOMIPRAMINE HYDROCHLORIDE. [Concomitant]
     Active Substance: CLOMIPRAMINE HYDROCHLORIDE
     Indication: MAJOR DEPRESSION
     Dosage: 100 MG, QD
     Route: 048
     Dates: start: 20141104, end: 20141127
  2. ARIPIPRAZOLE. [Suspect]
     Active Substance: ARIPIPRAZOLE
     Indication: MAJOR DEPRESSION
     Dosage: 3-15MG, DAILY DOES
     Route: 048
     Dates: end: 20141127
  3. ARIPIPRAZOLE. [Suspect]
     Active Substance: ARIPIPRAZOLE
     Indication: DEPRESSION
     Dosage: 3 MG, QD
     Route: 048
     Dates: start: 20141117

REACTIONS (1)
  - Hepatic function abnormal [Recovered/Resolved]

NARRATIVE: CASE EVENT DATE: 20141119
